FAERS Safety Report 24146782 (Version 1)
Quarter: 2024Q3

REPORT INFORMATION
  Report Type: Spontaneous
  Country: US (occurrence: US)
  Receive Date: 20240729
  Receipt Date: 20240729
  Transmission Date: 20241017
  Serious: Yes (Life-Threatening, Hospitalization, Other)
  Sender: INCYTE
  Company Number: US-INCYTE CORPORATION-2024IN007834

PATIENT

DRUGS (1)
  1. JAKAFI [Suspect]
     Active Substance: RUXOLITINIB
     Indication: Graft versus host disease
     Dosage: 15 MILLIGRAM
     Route: 065
     Dates: start: 201403

REACTIONS (3)
  - Pneumonia [Unknown]
  - Dysphagia [Recovered/Resolved]
  - Off label use [Unknown]

NARRATIVE: CASE EVENT DATE: 20140301
